FAERS Safety Report 6591642-6 (Version None)
Quarter: 2010Q1

REPORT INFORMATION
  Report Type: 
  Country: None (occurrence: None)
  Receive Date: 20100221
  Receipt Date: 20090819
  Transmission Date: 20100710
  Serious: Yes (Other)
  Sender: FDA-Public Use
  Company Number: US-ALLERGAN-0911025US

PATIENT
  Sex: Female

DRUGS (3)
  1. BOTOX COSMETIC [Suspect]
     Indication: SKIN WRINKLING
     Dosage: 78 UNK, SINGLE
     Route: 030
     Dates: start: 20090327, end: 20090327
  2. BOTOX COSMETIC [Suspect]
     Dosage: 78 UNITS, SINGLE
     Route: 030
     Dates: start: 20090723, end: 20090723
  3. BOTOX COSMETIC [Suspect]
     Dosage: UNK
     Route: 030
     Dates: start: 20081101, end: 20081101

REACTIONS (4)
  - DRY MOUTH [None]
  - DYSPHAGIA [None]
  - LOCAL SWELLING [None]
  - PAROTID GLAND ENLARGEMENT [None]
